FAERS Safety Report 8474597-9 (Version None)
Quarter: 2012Q2

REPORT INFORMATION
  Report Type: 
  Country: None (occurrence: None)
  Receive Date: 20120628
  Receipt Date: 20120625
  Transmission Date: 20120825
  Serious: Yes (Other)
  Sender: FDA-Public Use
  Company Number: US-BAYER-2012-044159

PATIENT
  Age: 20 Year
  Sex: Female
  Weight: 57.596 kg

DRUGS (3)
  1. LUTERA-28 [Concomitant]
     Dosage: 0.1-20 MG, ONE DAILY
  2. MIRENA [Suspect]
     Indication: CONTRACEPTION
     Dosage: 20 MCG/24HR, CONT
     Route: 015
     Dates: start: 20120504, end: 20120504
  3. LAMOTRIGINE [Concomitant]
     Indication: CONVULSION
     Dosage: 100 MG, BID
     Route: 048
     Dates: start: 20110413

REACTIONS (2)
  - DEVICE EXPULSION [None]
  - CONVULSION [None]
